FAERS Safety Report 20803969 (Version 7)
Quarter: 2023Q1

REPORT INFORMATION
  Report Type: Spontaneous
  Country: US (occurrence: US)
  Receive Date: 20220509
  Receipt Date: 20230220
  Transmission Date: 20230418
  Serious: Yes (Other)
  Sender: FDA-Public Use
  Company Number: US-PFIZER INC-202200185077

PATIENT
  Age: 74 Year
  Sex: Female

DRUGS (1)
  1. XELJANZ XR [Suspect]
     Active Substance: TOFACITINIB CITRATE
     Dosage: 11 MG, 1X/DAY (30 TAB BOTTLE)
     Route: 048

REACTIONS (5)
  - Spinal operation [Unknown]
  - Malaise [Unknown]
  - Bradykinesia [Unknown]
  - Abdominal discomfort [Unknown]
  - Diarrhoea [Unknown]
